FAERS Safety Report 8599687-1 (Version None)
Quarter: 2012Q3

REPORT INFORMATION
  Report Type: 
  Country: None (occurrence: None)
  Receive Date: 20120816
  Receipt Date: 20120802
  Transmission Date: 20120928
  Serious: Yes (Hospitalization, Other)
  Sender: FDA-Public Use
  Company Number: GB-MYLANLABS-2012S1014339

PATIENT
  Age: 69 Year
  Sex: Female
  Weight: 64 kg

DRUGS (17)
  1. PAROXETINE HCL [Suspect]
     Indication: DEPRESSION
     Route: 048
     Dates: start: 19970707
  2. ATORVASTATIN [Concomitant]
     Indication: PRODUCT USED FOR UNKNOWN INDICATION
     Dates: start: 20031114
  3. BECONASE [Concomitant]
     Indication: PRODUCT USED FOR UNKNOWN INDICATION
     Dates: start: 20071120
  4. METOCLOPRAMIDE [Suspect]
     Indication: PRODUCT USED FOR UNKNOWN INDICATION
     Route: 048
     Dates: start: 20080806, end: 20110901
  5. PROPRANOLOL [Suspect]
     Indication: PRODUCT USED FOR UNKNOWN INDICATION
     Route: 048
     Dates: start: 20120501
  6. PAROXETINE HCL [Suspect]
     Route: 048
     Dates: start: 20010201, end: 20100501
  7. FENOFIBRATE [Concomitant]
     Indication: PRODUCT USED FOR UNKNOWN INDICATION
     Dates: start: 20030520
  8. LORAZEPAM [Suspect]
     Indication: PRODUCT USED FOR UNKNOWN INDICATION
     Route: 048
     Dates: start: 20120329, end: 20120523
  9. RAMIPRIL [Concomitant]
     Indication: PRODUCT USED FOR UNKNOWN INDICATION
     Dates: start: 20080201
  10. MIRTAZAPINE [Suspect]
     Indication: PRODUCT USED FOR UNKNOWN INDICATION
     Dates: start: 20120501
  11. BENDROFLUMETHIAZIDE [Concomitant]
     Indication: PRODUCT USED FOR UNKNOWN INDICATION
     Dates: start: 20050420
  12. LANSOPRAZOLE [Concomitant]
     Indication: PRODUCT USED FOR UNKNOWN INDICATION
     Dates: start: 20080627
  13. MIRTAZAPINE [Suspect]
  14. PAROXETINE HCL [Suspect]
     Route: 048
     Dates: start: 20111013, end: 20111206
  15. ACRIVASTINE [Concomitant]
     Indication: PRODUCT USED FOR UNKNOWN INDICATION
     Dates: start: 19950728
  16. PAROXETINE HCL [Suspect]
     Route: 048
     Dates: start: 20100701, end: 20110901
  17. TETRABENAZINE [Suspect]
     Indication: PRODUCT USED FOR UNKNOWN INDICATION
     Route: 048
     Dates: start: 20111128, end: 20120320

REACTIONS (5)
  - MUSCLE CONTRACTIONS INVOLUNTARY [None]
  - AKATHISIA [None]
  - FALL [None]
  - EATING DISORDER [None]
  - HALLUCINATION [None]
